FAERS Safety Report 12739865 (Version 2)
Quarter: 2016Q4

REPORT INFORMATION
  Report Type: Spontaneous
  Country: ID (occurrence: ID)
  Receive Date: 20160913
  Receipt Date: 20161025
  Transmission Date: 20170207
  Serious: Yes (Congenital Anomaly, Other)
  Sender: FDA-Public Use
  Company Number: ID-JNJFOC-20160906967

PATIENT

DRUGS (1)
  1. TOPIRAMATE. [Suspect]
     Active Substance: TOPIRAMATE
     Indication: PRODUCT USED FOR UNKNOWN INDICATION
     Route: 064

REACTIONS (3)
  - Hypospadias [Unknown]
  - Congenital anomaly [Unknown]
  - Foetal exposure during pregnancy [Recovered/Resolved]
